FAERS Safety Report 7526518-0 (Version None)
Quarter: 2011Q2

REPORT INFORMATION
  Report Type: 
  Country: None (occurrence: None)
  Receive Date: 20110606
  Receipt Date: 20110525
  Transmission Date: 20111010
  Serious: Yes (Hospitalization)
  Sender: FDA-Public Use
  Company Number: IT-BAYER-2011-045185

PATIENT
  Age: 77 Year
  Sex: Female

DRUGS (6)
  1. OFTIMOLO [Concomitant]
     Route: 047
  2. CIPROFLOXACIN [Suspect]
     Indication: CYSTITIS
     Dosage: DAILY DOSE 250 MG
     Route: 048
     Dates: start: 20110326, end: 20110401
  3. UNIDROX [Suspect]
     Indication: CYSTITIS
     Dosage: DAILY DOSE 600 MG
     Route: 048
     Dates: start: 20110401, end: 20110407
  4. SINVACOR [Concomitant]
     Route: 048
  5. VASERETIC [Concomitant]
     Route: 048
  6. PANTOPRAZOLE [Concomitant]
     Route: 048

REACTIONS (4)
  - ARTHRALGIA [None]
  - GENERAL PHYSICAL HEALTH DETERIORATION [None]
  - ANAEMIA [None]
  - PETECHIAE [None]
